FAERS Safety Report 25944405 (Version 1)
Quarter: 2025Q4

REPORT INFORMATION
  Report Type: Report from Study
  Country: AE (occurrence: AE)
  Receive Date: 20251021
  Receipt Date: 20251021
  Transmission Date: 20260117
  Serious: Yes (Hospitalization, Other)
  Sender: NOVARTIS
  Company Number: AE-002147023-NVSC2025AE097740

PATIENT
  Age: 36 Year
  Sex: Male

DRUGS (2)
  1. JADENU [Suspect]
     Active Substance: DEFERASIROX
     Indication: Iron overload
     Dosage: 360 MG, TID(3 TABLETS PER DAY (1080 MG)
     Route: 048
     Dates: start: 20221108
  2. TOBREX [Concomitant]
     Active Substance: TOBRAMYCIN
     Indication: Product used for unknown indication
     Dosage: 2 DROPS IN EACH EYE, Q4H
     Route: 047

REACTIONS (4)
  - Cataract [Unknown]
  - Cough [Unknown]
  - Influenza [Unknown]
  - Dyspnoea [Unknown]

NARRATIVE: CASE EVENT DATE: 20251013
